FAERS Safety Report 13505077 (Version 1)
Quarter: 2017Q2

REPORT INFORMATION
  Report Type: Spontaneous
  Country: None (occurrence: GB)
  Receive Date: 20170502
  Receipt Date: 20170502
  Transmission Date: 20170830
  Serious: Yes (Other)
  Sender: FDA-Public Use
  Company Number: GB-XIROMED, LLC-2020132

PATIENT
  Sex: Female

DRUGS (13)
  1. AMIODARONE HCL [Suspect]
     Active Substance: AMIODARONE HYDROCHLORIDE
     Route: 065
  2. PERINDOPRIL ERBUMINE. [Concomitant]
     Active Substance: PERINDOPRIL ERBUMINE
  3. FABRAZYME [Suspect]
     Active Substance: AGALSIDASE BETA
     Route: 041
  4. LANSOPRAZOLE. [Suspect]
     Active Substance: LANSOPRAZOLE
     Route: 065
  5. CLOPIDOGREL [Suspect]
     Active Substance: CLOPIDOGREL BISULFATE
     Route: 065
  6. ASPIRIN. [Concomitant]
     Active Substance: ASPIRIN
  7. FULTIUM-D3 [Concomitant]
     Active Substance: CHOLECALCIFEROL
  8. COCODAMOL [Suspect]
     Active Substance: ACETAMINOPHEN\CODEINE PHOSPHATE
     Route: 065
  9. FABRAZYME [Suspect]
     Active Substance: AGALSIDASE BETA
     Route: 041
  10. CITALOPRAM [Suspect]
     Active Substance: CITALOPRAM HYDROBROMIDE
     Route: 065
  11. NEBIVOLOL. [Concomitant]
     Active Substance: NEBIVOLOL
  12. SALBUTAMOL [Concomitant]
     Active Substance: ALBUTEROL
  13. LYRICA [Concomitant]
     Active Substance: PREGABALIN

REACTIONS (3)
  - Lower respiratory tract infection [Unknown]
  - Cough [Recovered/Resolved]
  - Wheezing [Unknown]
